FAERS Safety Report 10264408 (Version 1)
Quarter: 2014Q2

REPORT INFORMATION
  Report Type: Spontaneous
  Country: US (occurrence: US)
  Receive Date: 20140627
  Receipt Date: 20140627
  Transmission Date: 20141212
  Serious: Yes (Death)
  Sender: FDA-Public Use
  Company Number: US-CELGENEUS-163-21880-14064034

PATIENT
  Sex: Female
  Weight: 65.38 kg

DRUGS (2)
  1. REVLIMID [Suspect]
     Indication: 5Q MINUS SYNDROME
     Dosage: 25 MILLIGRAM
     Route: 048
     Dates: start: 20130228
  2. MEDROL DOSEPAK [Concomitant]
     Indication: PRODUCT USED FOR UNKNOWN INDICATION
     Route: 065

REACTIONS (1)
  - Death [Fatal]
